FAERS Safety Report 8191466-2 (Version None)
Quarter: 2012Q1

REPORT INFORMATION
  Report Type: 
  Country: None (occurrence: None)
  Receive Date: 20120307
  Receipt Date: 20110808
  Transmission Date: 20120608
  Serious: No
  Sender: FDA-Public Use
  Company Number: PH-ASTRAZENECA-2011SE47211

PATIENT
  Sex: Female

DRUGS (3)
  1. ZOMIG [Suspect]
     Indication: MIGRAINE
     Route: 048
     Dates: start: 20010101
  2. LIPITOR [Concomitant]
  3. ZOMIG [Suspect]
     Route: 048

REACTIONS (6)
  - MIGRAINE [None]
  - DRUG PRESCRIBING ERROR [None]
  - NASOPHARYNGITIS [None]
  - JOINT SWELLING [None]
  - WRONG TECHNIQUE IN DRUG USAGE PROCESS [None]
  - URTICARIA [None]
